FAERS Safety Report 8059195-3 (Version None)
Quarter: 2012Q1

REPORT INFORMATION
  Report Type: 
  Country: None (occurrence: None)
  Receive Date: 20120120
  Receipt Date: 20120118
  Transmission Date: 20120608
  Serious: Yes (Other)
  Sender: FDA-Public Use
  Company Number: US-PFIZER INC-2012014998

PATIENT
  Sex: Female
  Weight: 96.14 kg

DRUGS (7)
  1. NORVASC [Suspect]
     Indication: HYPERTENSION
     Dosage: 10 MG,DAILY
  2. METOPROLOL [Concomitant]
     Indication: HYPERTENSION
     Dosage: 25 MG,DAILY
  3. LOVASTATIN [Suspect]
     Dosage: UNK
  4. HUMALOG [Concomitant]
     Indication: DIABETES MELLITUS
     Dosage: UNK
  5. ISOSORBIDE [Concomitant]
     Dosage: UNK
  6. ARTHROTEC [Suspect]
     Indication: ARTHRITIS
     Dosage: 50 MG, 2X/DAY
     Dates: start: 20030101
  7. LANTUS [Concomitant]
     Indication: DIABETES MELLITUS
     Dosage: UNK

REACTIONS (2)
  - MYOCARDIAL INFARCTION [None]
  - ABDOMINAL PAIN UPPER [None]
